FAERS Safety Report 25243012 (Version 1)
Quarter: 2025Q2

REPORT INFORMATION
  Report Type: Spontaneous
  Country: TW (occurrence: TW)
  Receive Date: 20250428
  Receipt Date: 20250428
  Transmission Date: 20250717
  Serious: Yes (Hospitalization, Other)
  Sender: DAIICHI
  Company Number: TW-DSJP-DS-2025-137858-TW

PATIENT
  Age: 75 Year
  Sex: Female
  Weight: 55.1 kg

DRUGS (1)
  1. EDOXABAN [Suspect]
     Active Substance: EDOXABAN
     Indication: Atrial fibrillation
     Dosage: 30 MG, QD
     Route: 048
     Dates: start: 20240110, end: 20240118

REACTIONS (2)
  - Cerebral haemorrhage [Recovering/Resolving]
  - Meningioma [Recovering/Resolving]

NARRATIVE: CASE EVENT DATE: 20240119
